FAERS Safety Report 12042832 (Version 1)
Quarter: 2016Q1

REPORT INFORMATION
  Report Type: Other
  Country: US (occurrence: US)
  Receive Date: 20160208
  Receipt Date: 20160208
  Transmission Date: 20160526
  Serious: Yes (Death, Hospitalization, Other)
  Sender: FDA-Public Use
  Company Number: US-ANTARES PHARMA, INC.-2015-SPT-ME-0211

PATIENT
  Age: 50 Year
  Sex: Female
  Weight: 86.62 kg

DRUGS (5)
  1. PLAVIX [Concomitant]
     Active Substance: CLOPIDOGREL BISULFATE
     Dosage: UNK
     Dates: start: 20130712, end: 20140812
  2. METHOTREXATE [Suspect]
     Active Substance: METHOTREXATE
     Indication: METASTASES TO MENINGES
  3. BLINDED STUDY MEDICATION [Suspect]
     Active Substance: INVESTIGATIONAL PRODUCT
     Indication: INVASIVE DUCTAL BREAST CARCINOMA
     Dosage: 25 MG, BID
     Dates: start: 20140812, end: 20141105
  4. XGEVA [Concomitant]
     Active Substance: DENOSUMAB
     Dosage: UNK
     Dates: start: 20140603
  5. CAPECITABINE. [Suspect]
     Active Substance: CAPECITABINE
     Indication: INVASIVE DUCTAL BREAST CARCINOMA
     Dosage: UNK
     Dates: start: 20140812, end: 20141105

REACTIONS (2)
  - Platelet count decreased [Fatal]
  - Meningitis [Fatal]

NARRATIVE: CASE EVENT DATE: 20141106
